FAERS Safety Report 10586191 (Version 1)
Quarter: 2014Q4

REPORT INFORMATION
  Report Type: Report from Study
  Country: GB (occurrence: GB)
  Receive Date: 20141116
  Receipt Date: 20141116
  Transmission Date: 20150529
  Serious: Yes (Death)
  Sender: FDA-Public Use
  Company Number: GB-ROCHE-1491442

PATIENT
  Age: 48 Year
  Sex: Female

DRUGS (4)
  1. CAPECITABINE. [Suspect]
     Active Substance: CAPECITABINE
     Indication: ANAL CANCER
     Route: 048
     Dates: end: 20131213
  2. APREPITANT. [Concomitant]
     Active Substance: APREPITANT
     Route: 048
  3. APREPITANT. [Concomitant]
     Active Substance: APREPITANT
     Indication: ANAL CANCER
     Route: 048
     Dates: end: 20131213
  4. CISPLATIN. [Concomitant]
     Active Substance: CISPLATIN
     Indication: ANAL CANCER
     Route: 042
     Dates: end: 20131213

REACTIONS (1)
  - Death [Fatal]
